FAERS Safety Report 8758654 (Version 2)
Quarter: 2012Q4

REPORT INFORMATION
  Report Type: Spontaneous
  Country: US (occurrence: None)
  Receive Date: 20120814
  Receipt Date: 20120828
  Transmission Date: 20130627
  Serious: Yes (Other)
  Sender: FDA-Public Use
  Company Number: 2012AP002326

PATIENT
  Age: 82 Year
  Sex: Female

DRUGS (4)
  1. TERBINAFINE [Suspect]
     Indication: ONYCHOMYCOSIS
  2. RISEDRONIC ACID [Concomitant]
  3. LEKOVIT CA (LEKOVIT CA) [Concomitant]
  4. LISINOPRIL [Suspect]

REACTIONS (4)
  - Hearing impaired [None]
  - Insomnia [None]
  - Headache [None]
  - Asthenia [None]
